FAERS Safety Report 22260860 (Version 4)
Quarter: 2025Q4

REPORT INFORMATION
  Report Type: Report from Study
  Country: ZA (occurrence: ZA)
  Receive Date: 20230427
  Receipt Date: 20251229
  Transmission Date: 20260117
  Serious: Yes (Other)
  Sender: PFIZER
  Company Number: ZA-PFIZER INC-PV202300075131

PATIENT
  Age: 69 Year
  Sex: Female
  Weight: 94 kg

DRUGS (4)
  1. METHOTREXATE SODIUM [Suspect]
     Active Substance: METHOTREXATE SODIUM
     Dosage: 25 MG, WEEKLY
     Route: 058
     Dates: start: 20190528
  2. CHLOROQUINE [Suspect]
     Active Substance: CHLOROQUINE
     Dosage: 200 MG, DAILY
     Dates: start: 20180202
  3. AZASAN [Suspect]
     Active Substance: AZATHIOPRINE
     Dosage: 50 MG, DAILY
     Route: 048
     Dates: start: 20220722
  4. ENBREL [Concomitant]
     Active Substance: ETANERCEPT
     Dosage: 50 MG, WEEKLY
     Route: 058

REACTIONS (5)
  - Myocardial ischaemia [Unknown]
  - Psoriatic arthropathy [Unknown]
  - Spinal operation [Unknown]
  - Asthma-chronic obstructive pulmonary disease overlap syndrome [Unknown]
  - Dyslipidaemia [Unknown]

NARRATIVE: CASE EVENT DATE: 20240701
